FAERS Safety Report 9290758 (Version 1)
Quarter: 2013Q2

REPORT INFORMATION
  Report Type: Spontaneous
  Country: BR (occurrence: BR)
  Receive Date: 20130515
  Receipt Date: 20130515
  Transmission Date: 20140414
  Serious: Yes (Other)
  Sender: FDA-Public Use
  Company Number: PHHY2012BR121492

PATIENT
  Age: 42 Year
  Sex: Male

DRUGS (3)
  1. MIFLASONE [Suspect]
     Indication: WHEEZING
     Dosage: 10 DF
  2. MIFLASONE [Suspect]
     Dosage: 2 DF, QD
     Dates: end: 20121217
  3. ATENOLOL [Suspect]
     Indication: HYPERTENSION
     Dosage: 2 DF, UNK
     Route: 048
     Dates: start: 201204

REACTIONS (9)
  - Pulmonary oedema [Unknown]
  - Pain [Not Recovered/Not Resolved]
  - Chest discomfort [Not Recovered/Not Resolved]
  - Bronchitis [Not Recovered/Not Resolved]
  - Back pain [Recovering/Resolving]
  - Cold sweat [Recovered/Resolved]
  - Hyperhidrosis [Recovered/Resolved]
  - Dyspnoea [Not Recovered/Not Resolved]
  - Wheezing [Recovered/Resolved]
